FAERS Safety Report 6775321-8 (Version None)
Quarter: 2010Q2

REPORT INFORMATION
  Report Type: 
  Country: None (occurrence: None)
  Receive Date: 20100615
  Receipt Date: 20100615
  Transmission Date: 20101027
  Serious: Yes (Hospitalization)
  Sender: FDA-Public Use
  Company Number: None

PATIENT
  Age: 56 Year
  Sex: Male
  Weight: 81.6475 kg

DRUGS (2)
  1. EFFIENT [Suspect]
     Indication: BLOOD PHOSPHORUS
     Dosage: 10MG DAILY PO
     Route: 048
     Dates: start: 20091101, end: 20100613
  2. ASPIRIN [Concomitant]

REACTIONS (3)
  - DIARRHOEA HAEMORRHAGIC [None]
  - DYSPEPSIA [None]
  - HEADACHE [None]
